FAERS Safety Report 9163526 (Version 1)
Quarter: 2013Q1

REPORT INFORMATION
  Report Type: Spontaneous
  Country: US (occurrence: US)
  Receive Date: 20130314
  Receipt Date: 20130314
  Transmission Date: 20140127
  Serious: Yes (Other)
  Sender: FDA-Public Use
  Company Number: US-PFIZER INC-2013082472

PATIENT
  Age: 48 Year
  Sex: Female

DRUGS (3)
  1. ZOLOFT [Suspect]
     Dosage: 150 MG (100MG, 1 1/2 TABLET), 1X/DAY (AT BEDTIME)
  2. NORVASC [Suspect]
     Dosage: 5 MG, 1X/DAY
  3. LIPITOR [Suspect]
     Dosage: 20 MG, 1X/DAY

REACTIONS (2)
  - Cerebrovascular accident [Unknown]
  - Cardiac disorder [Unknown]
